FAERS Safety Report 10142020 (Version 3)
Quarter: 2014Q2

REPORT INFORMATION
  Report Type: Report from Study
  Country: ES (occurrence: ES)
  Receive Date: 20140429
  Receipt Date: 20140624
  Transmission Date: 20141212
  Serious: Yes (Other)
  Sender: FDA-Public Use
  Company Number: ES-009507513-1404ESP011223

PATIENT
  Age: 67 Year
  Sex: Male
  Weight: 90 kg

DRUGS (8)
  1. VICTRELIS [Suspect]
     Indication: CHRONIC HEPATITIS C
     Dosage: 2400 MG AL DIA
     Route: 048
     Dates: start: 20130218, end: 20131223
  2. RIBAVIRIN [Suspect]
     Indication: CHRONIC HEPATITIS C
     Dosage: 1200 MG AL DIA
     Route: 048
     Dates: start: 20130125, end: 20131223
  3. PEGASYS [Suspect]
     Indication: CHRONIC HEPATITIS C
     Dosage: 180 MCG A LA SEMANA
     Route: 058
     Dates: start: 20130125, end: 20131223
  4. TORSEMIDE [Concomitant]
     Indication: HYPERTENSION
     Dosage: 5 MG AL DIA
     Route: 048
     Dates: start: 20130121
  5. OMEPRAZOLE [Concomitant]
     Dosage: 20 MG AL DIA
     Route: 048
     Dates: start: 20130115
  6. LORAZEPAM [Concomitant]
     Dosage: 1 MG AL DIA
     Route: 048
     Dates: start: 20130121
  7. IXIA PLUS [Concomitant]
     Indication: HYPERTENSION
     Dosage: 20 MG AL DIA
     Route: 048
     Dates: start: 20130121
  8. DILTIAZEM HYDROCHLORIDE [Concomitant]
     Indication: HYPERTENSION
     Dosage: 120 MG AL DIA
     Route: 048
     Dates: start: 20130121

REACTIONS (1)
  - Rash pruritic [Not Recovered/Not Resolved]
